FAERS Safety Report 21338825 (Version 2)
Quarter: 2022Q3

REPORT INFORMATION
  Report Type: Spontaneous
  Country: JP (occurrence: JP)
  Receive Date: 20220915
  Receipt Date: 20220928
  Transmission Date: 20221027
  Serious: Yes (Hospitalization, Other)
  Sender: FDA-Public Use
  Company Number: A202200641-001

PATIENT
  Age: 65 Year
  Sex: Male

DRUGS (13)
  1. BENDAMUSTINE HYDROCHLORIDE [Suspect]
     Active Substance: BENDAMUSTINE HYDROCHLORIDE
     Indication: Follicular lymphoma
     Dosage: 90 MG/M2, CYCLE 1 GB THERAPY
     Route: 042
     Dates: start: 20191009
  2. BENDAMUSTINE HYDROCHLORIDE [Suspect]
     Active Substance: BENDAMUSTINE HYDROCHLORIDE
     Dosage: 90 MG/M2, CYCLE 2 GB THERAPY
     Route: 042
     Dates: start: 20191117
  3. BENDAMUSTINE HYDROCHLORIDE [Suspect]
     Active Substance: BENDAMUSTINE HYDROCHLORIDE
     Dosage: 90 MG/M2, CYCLE 3 GB THERAPY
     Route: 042
     Dates: start: 20191205
  4. BENDAMUSTINE HYDROCHLORIDE [Suspect]
     Active Substance: BENDAMUSTINE HYDROCHLORIDE
     Dosage: 90 MG/M2, CYCLE 4 GB THERAPY
     Route: 042
     Dates: start: 20200109
  5. BENDAMUSTINE HYDROCHLORIDE [Suspect]
     Active Substance: BENDAMUSTINE HYDROCHLORIDE
     Dosage: 90 MG/M2, CYCLE 5 GB THERAPY
     Route: 042
     Dates: start: 20220213
  6. BENDAMUSTINE HYDROCHLORIDE [Suspect]
     Active Substance: BENDAMUSTINE HYDROCHLORIDE
     Dosage: 90 MG/M2, CYCLE 6 GB THERAPY
     Route: 042
     Dates: start: 20200318
  7. GAZYVA [Concomitant]
     Active Substance: OBINUTUZUMAB
     Indication: Follicular lymphoma
     Dosage: 1000 MG, CYCLE 1 GB THERAPY
     Route: 042
     Dates: start: 201910
  8. GAZYVA [Concomitant]
     Active Substance: OBINUTUZUMAB
     Dosage: 1000 MG, CYCLE 2 GB THERAPY
     Route: 042
     Dates: start: 201911
  9. GAZYVA [Concomitant]
     Active Substance: OBINUTUZUMAB
     Dosage: 1000 MG, CYCLE 3 GB THERAPY
     Route: 042
     Dates: start: 201912
  10. GAZYVA [Concomitant]
     Active Substance: OBINUTUZUMAB
     Dosage: 1000 MG, CYCLE 4 GB THERAPY
     Route: 042
     Dates: start: 202001
  11. GAZYVA [Concomitant]
     Active Substance: OBINUTUZUMAB
     Dosage: 1000 MG, CYCLE 5 GB THERAPY
     Route: 042
     Dates: start: 202002
  12. GAZYVA [Concomitant]
     Active Substance: OBINUTUZUMAB
     Dosage: 1000 MG, CYCLE 6 GB THERAPY
     Route: 042
     Dates: start: 202003
  13. GAZYVA [Concomitant]
     Active Substance: OBINUTUZUMAB
     Dosage: UNK, (MAINTENANCE THERAPY)
     Route: 042
     Dates: start: 2020, end: 202010

REACTIONS (4)
  - COVID-19 [Recovered/Resolved]
  - COVID-19 pneumonia [Recovered/Resolved]
  - Hypogammaglobulinaemia [Not Recovered/Not Resolved]
  - T-lymphocyte count decreased [Not Recovered/Not Resolved]

NARRATIVE: CASE EVENT DATE: 20200101
